FAERS Safety Report 11424167 (Version 2)
Quarter: 2015Q3

REPORT INFORMATION
  Report Type: Spontaneous
  Country: US (occurrence: US)
  Receive Date: 20150827
  Receipt Date: 20150921
  Transmission Date: 20151125
  Serious: Yes (Other)
  Sender: FDA-Public Use
  Company Number: ALCN2015US005150

PATIENT
  Age: 72 Year
  Sex: Male

DRUGS (2)
  1. TIMOLOL. [Suspect]
     Active Substance: TIMOLOL
     Indication: GLAUCOMA
     Dosage: 1 GTT, BID
     Route: 047
     Dates: start: 20150813, end: 20150814
  2. TIMOLOL. [Suspect]
     Active Substance: TIMOLOL
     Dosage: 1 GTT, QD
     Route: 047
     Dates: end: 20150813

REACTIONS (2)
  - Heart rate increased [Recovered/Resolved]
  - Arrhythmia [Recovered/Resolved]

NARRATIVE: CASE EVENT DATE: 20150813
